FAERS Safety Report 24608104 (Version 1)
Quarter: 2024Q4

REPORT INFORMATION
  Report Type: Spontaneous
  Country: US (occurrence: None)
  Receive Date: 20241112
  Receipt Date: 20241112
  Transmission Date: 20250115
  Serious: Yes (Hospitalization)
  Sender: Public
  Company Number: None

PATIENT
  Age: 10 Year
  Sex: Female
  Weight: 49.8 kg

DRUGS (4)
  1. DEXAMETHASONE [Suspect]
     Active Substance: DEXAMETHASONE
     Dates: end: 20241007
  2. MERCAPTOPURINE [Suspect]
     Active Substance: MERCAPTOPURINE
     Dates: end: 20241101
  3. METHOTREXATE [Suspect]
     Active Substance: METHOTREXATE
     Dates: end: 20241031
  4. VINCRISTINE SULFATE [Suspect]
     Active Substance: VINCRISTINE SULFATE

REACTIONS (7)
  - Cough [None]
  - Pallor [None]
  - Oxygen saturation decreased [None]
  - Pneumonia [None]
  - Pleural effusion [None]
  - Febrile neutropenia [None]
  - Therapy interrupted [None]

NARRATIVE: CASE EVENT DATE: 20241105
